FAERS Safety Report 6243529-6 (Version None)
Quarter: 2009Q2

REPORT INFORMATION
  Report Type: 
  Country: None (occurrence: None)
  Receive Date: 20090624
  Receipt Date: 20090617
  Transmission Date: 20091009
  Serious: Yes (Other)
  Sender: FDA-Public Use
  Company Number: PHHY2009BR24813

PATIENT
  Age: 66 Year
  Sex: Male

DRUGS (1)
  1. ENABLEX [Suspect]
     Dosage: 7.5 MG, BID
     Route: 048
     Dates: start: 20090401

REACTIONS (1)
  - PROSTATIC SPECIFIC ANTIGEN INCREASED [None]
